FAERS Safety Report 5675459-2 (Version None)
Quarter: 2008Q2

REPORT INFORMATION
  Report Type: 
  Country: None (occurrence: None)
  Receive Date: 20080311
  Receipt Date: 20071114
  Transmission Date: 20081010
  Serious: No
  Sender: FDA-Public Use
  Company Number: 002#2#2007-00329

PATIENT
  Age: 74 Year
  Sex: Female
  Weight: 59.8748 kg

DRUGS (11)
  1. NEUPRO [Suspect]
     Indication: PARKINSON'S DISEASE
     Dosage: 2MG/24H,1 IN 1 D, TRANSDERMAL
     Route: 062
     Dates: start: 20071025, end: 20071026
  2. BONIVA [Concomitant]
  3. ATENOLOL [Concomitant]
  4. ZOLOFT [Concomitant]
  5. STALEVOL [Concomitant]
  6. CALCIUM [Concomitant]
  7. VITAMIN-ADVANCED 65 [Concomitant]
  8. ASPIRIN [Concomitant]
  9. PRILOSEC [Concomitant]
  10. HYDROCHLOROTHIAZIDE [Concomitant]
  11. FOLIC ACID [Concomitant]

REACTIONS (4)
  - AGGRESSION [None]
  - ANGER [None]
  - FEELING ABNORMAL [None]
  - SOMNOLENCE [None]
